FAERS Safety Report 4895465-5 (Version None)
Quarter: 2005Q4

REPORT INFORMATION
  Report Type: 
  Country: None (occurrence: None)
  Receive Date: 20051220
  Receipt Date: 20050614
  Transmission Date: 20060501
  Serious: Yes (Other)
  Sender: FDA-Public Use
  Company Number: US135839

PATIENT
  Age: 53 Year
  Sex: Female

DRUGS (5)
  1. ENBREL [Suspect]
     Indication: PSORIASIS
     Dosage: 50 MG, 1 IN 1 WEEKS
     Dates: start: 20020101, end: 20050401
  2. FEXOFENADINE HYDROCHLORIDE [Concomitant]
  3. CELEXA [Concomitant]
  4. LORAZEPAM [Concomitant]
  5. SINEMET [Concomitant]

REACTIONS (2)
  - BREAST CANCER RECURRENT [None]
  - METASTASES TO LUNG [None]
